FAERS Safety Report 9235894 (Version 2)
Quarter: 2013Q2

REPORT INFORMATION
  Report Type: Report from Study
  Country: JP (occurrence: JP)
  Receive Date: 20130417
  Receipt Date: 20130429
  Transmission Date: 20140414
  Serious: Yes (Other)
  Sender: FDA-Public Use
  Company Number: JP-ASTELLAS-2013JP004916

PATIENT
  Age: 80 Year
  Sex: Male
  Weight: 78.2 kg

DRUGS (6)
  1. MIRABEGRON [Suspect]
     Indication: HYPERTONIC BLADDER
     Dosage: 50 MG, UID/QD
     Route: 048
     Dates: start: 20121029
  2. MAGMITT [Concomitant]
     Indication: CONSTIPATION
     Dosage: UNK
     Route: 048
  3. FORSENID                           /00571901/ [Concomitant]
     Indication: CONSTIPATION
     Dosage: UNK
     Route: 048
  4. BAYASPIRIN [Concomitant]
     Indication: CEREBRAL INFARCTION
     Dosage: UNK
     Route: 048
  5. SILECE [Concomitant]
     Indication: INSOMNIA
     Dosage: UNK
     Route: 048
  6. ALOSITOL [Concomitant]
     Indication: GOUT
     Dosage: UNK
     Route: 048

REACTIONS (1)
  - Oedema due to renal disease [Recovering/Resolving]
